FAERS Safety Report 17571772 (Version 5)
Quarter: 2022Q2

REPORT INFORMATION
  Report Type: Spontaneous
  Country: JP (occurrence: JP)
  Receive Date: 20200323
  Receipt Date: 20220627
  Transmission Date: 20220721
  Serious: Yes (Hospitalization, Other)
  Sender: FDA-Public Use
  Company Number: JP-ONO-2020JP006752

PATIENT
  Age: 49 Year
  Sex: Male
  Weight: 53.1 kg

DRUGS (13)
  1. PARSABIV [Suspect]
     Active Substance: ETELCALCETIDE HYDROCHLORIDE
     Indication: Hyperparathyroidism secondary
     Dosage: 5 MG, Q56H
     Route: 010
     Dates: start: 20190226, end: 20190328
  2. PARSABIV [Suspect]
     Active Substance: ETELCALCETIDE HYDROCHLORIDE
     Dosage: 7.5 MG, Q56H
     Route: 010
     Dates: start: 20190330, end: 20190718
  3. PARSABIV [Suspect]
     Active Substance: ETELCALCETIDE HYDROCHLORIDE
     Dosage: 5 MG, Q56H
     Route: 010
     Dates: start: 20190720, end: 20190808
  4. PARSABIV [Suspect]
     Active Substance: ETELCALCETIDE HYDROCHLORIDE
     Dosage: 2.5 MG, Q56H
     Route: 010
     Dates: start: 20190810, end: 20220519
  5. PARSABIV [Suspect]
     Active Substance: ETELCALCETIDE HYDROCHLORIDE
     Dosage: 5 MG, Q56H
     Route: 010
     Dates: start: 20220521
  6. WARKMIN [Concomitant]
     Active Substance: ALFACALCIDOL
     Dosage: 0.5 MUG, EVERYDAY
     Route: 065
     Dates: start: 20180118, end: 20190620
  7. BIXALOMER [Concomitant]
     Active Substance: BIXALOMER
     Dosage: 3000 MG
     Route: 048
  8. CALTAN [Concomitant]
     Active Substance: CALCIUM CARBONATE
     Dosage: 3000 MG
     Route: 048
  9. FULSTAN [Concomitant]
     Dosage: 0.15 UG, EVERYDAY
     Route: 048
     Dates: start: 20190621, end: 20200907
  10. FULSTAN [Concomitant]
     Dosage: 0.3 UG, EVERYDAY
     Route: 048
     Dates: start: 20200908, end: 20210327
  11. FULSTAN [Concomitant]
     Dosage: 0.15 UG, EVERYDAY
     Route: 048
     Dates: start: 20210328
  12. Fesin [Concomitant]
     Dosage: 40 MG, QW
     Route: 065
     Dates: start: 20210113, end: 20210122
  13. Fesin [Concomitant]
     Dosage: 40 MG, QW
     Route: 065
     Dates: start: 20210915

REACTIONS (3)
  - Myocardial ischaemia [Recovered/Resolved]
  - Acute myocardial infarction [Recovered/Resolved]
  - Skin ulcer [Recovered/Resolved]

NARRATIVE: CASE EVENT DATE: 20190812
